FAERS Safety Report 8113792 (Version 2)
Quarter: 2012Q4

REPORT INFORMATION
  Report Type: Report from Study
  Country: DE (occurrence: DE)
  Receive Date: 20110830
  Receipt Date: 20121130
  Transmission Date: 20130627
  Serious: Yes (Hospitalization)
  Sender: FDA-Public Use
  Company Number: DE-BRISTOL-MYERS SQUIBB COMPANY-15975246

PATIENT
  Age: 60 Year
  Sex: Male

DRUGS (3)
  1. ABATACEPT [Suspect]
     Dates: start: 200909, end: 201001
  2. GOLIMUMAB [Suspect]
     Dosage: 23Nov2010.
     Dates: start: 201003
  3. METHOTREXATE [Suspect]
     Dates: start: 201003

REACTIONS (1)
  - Hepatic enzyme increased [Recovered/Resolved]
